FAERS Safety Report 25372532 (Version 2)
Quarter: 2025Q3

REPORT INFORMATION
  Report Type: Report from Study
  Country: CN (occurrence: CN)
  Receive Date: 20250529
  Receipt Date: 20250902
  Transmission Date: 20251020
  Serious: No
  Sender: ROCHE
  Company Number: CN-ROCHE-10000033091

PATIENT
  Age: 85 Year
  Sex: Female
  Weight: 51 kg

DRUGS (49)
  1. POLATUZUMAB VEDOTIN [Suspect]
     Active Substance: POLATUZUMAB VEDOTIN
     Indication: Diffuse large B-cell lymphoma
     Route: 042
     Dates: end: 20240204
  2. POLATUZUMAB VEDOTIN [Suspect]
     Active Substance: POLATUZUMAB VEDOTIN
     Route: 042
     Dates: end: 20240301
  3. POLATUZUMAB VEDOTIN [Suspect]
     Active Substance: POLATUZUMAB VEDOTIN
     Route: 042
     Dates: end: 20240330
  4. POLATUZUMAB VEDOTIN [Suspect]
     Active Substance: POLATUZUMAB VEDOTIN
     Route: 042
     Dates: end: 20240106
  5. POLATUZUMAB VEDOTIN [Suspect]
     Active Substance: POLATUZUMAB VEDOTIN
     Route: 042
     Dates: start: 20231201, end: 20231201
  6. UNSPECIFIED INGREDIENT [Suspect]
     Active Substance: UNSPECIFIED INGREDIENT
     Indication: Diffuse large B-cell lymphoma
     Route: 042
     Dates: end: 20240105
  7. UNSPECIFIED INGREDIENT [Suspect]
     Active Substance: UNSPECIFIED INGREDIENT
     Route: 042
     Dates: end: 20240301
  8. UNSPECIFIED INGREDIENT [Suspect]
     Active Substance: UNSPECIFIED INGREDIENT
     Route: 042
     Dates: end: 20240329
  9. UNSPECIFIED INGREDIENT [Suspect]
     Active Substance: UNSPECIFIED INGREDIENT
     Dosage: THERAPY END DATE: 30-NOV-2023
     Route: 042
  10. LENALIDOMIDE [Suspect]
     Active Substance: LENALIDOMIDE
     Indication: Diffuse large B-cell lymphoma
     Route: 048
     Dates: end: 20240214
  11. LENALIDOMIDE [Suspect]
     Active Substance: LENALIDOMIDE
     Route: 048
     Dates: end: 20240408
  12. LENALIDOMIDE [Suspect]
     Active Substance: LENALIDOMIDE
     Route: 048
     Dates: end: 20240115
  13. LENALIDOMIDE [Suspect]
     Active Substance: LENALIDOMIDE
     Route: 048
     Dates: start: 20231201, end: 20231209
  14. ZANUBRUTINIB [Suspect]
     Active Substance: ZANUBRUTINIB
     Indication: Diffuse large B-cell lymphoma
     Route: 048
     Dates: end: 20240203
  15. ZANUBRUTINIB [Suspect]
     Active Substance: ZANUBRUTINIB
     Route: 048
     Dates: end: 20240408
  16. ZANUBRUTINIB [Suspect]
     Active Substance: ZANUBRUTINIB
     Route: 048
     Dates: end: 20240115
  17. ZANUBRUTINIB [Suspect]
     Active Substance: ZANUBRUTINIB
     Route: 048
     Dates: start: 20231130, end: 20240104
  18. RITUXIMAB [Suspect]
     Active Substance: RITUXIMAB
     Indication: Diffuse large B-cell lymphoma
     Route: 042
     Dates: end: 20231130
  19. RITUXIMAB [Suspect]
     Active Substance: RITUXIMAB
     Route: 042
     Dates: end: 20240203
  20. METFORMIN [Concomitant]
     Active Substance: METFORMIN HYDROCHLORIDE
     Route: 048
     Dates: start: 20231127
  21. METFORMIN [Concomitant]
     Active Substance: METFORMIN HYDROCHLORIDE
     Route: 048
     Dates: start: 20240710, end: 20241017
  22. LEUCOGEN [Concomitant]
     Active Substance: LEUCOGEN
     Route: 048
     Dates: start: 20231129
  23. LEUCOGEN [Concomitant]
     Active Substance: LEUCOGEN
     Route: 048
     Dates: start: 20240710, end: 20240811
  24. Cefaclor extended-release tablets [Concomitant]
     Indication: Infection prophylaxis
     Route: 048
     Dates: start: 20231129
  25. Entecavir tablets [Concomitant]
     Indication: Hepatitis B
     Dosage: OTHER MEDICATION FREQUENCY QN
     Route: 048
     Dates: start: 20240202, end: 20240229
  26. Entecavir tablets [Concomitant]
     Dosage: OTHER MEDICATION FREQUENCY QN
     Route: 048
     Dates: start: 20231129
  27. Entecavir tablets [Concomitant]
     Dosage: OTHER MEDICATION FREQUENCY QN
     Route: 048
     Dates: start: 20231225, end: 20240121
  28. Entecavir tablets [Concomitant]
     Dosage: OTHER MEDICATION FREQUENCY QN
     Route: 048
     Dates: start: 20240612, end: 20240903
  29. Entecavir tablets [Concomitant]
     Dosage: OTHER MEDICATION FREQUENCY QN
     Route: 048
     Dates: start: 20240910, end: 20241007
  30. Entecavir tablets [Concomitant]
     Dosage: OTHER MEDICATION FREQUENCY QN
     Route: 048
     Dates: start: 20241012
  31. SULFAMETHOXAZOLE [Concomitant]
     Active Substance: SULFAMETHOXAZOLE
     Indication: Infection prophylaxis
     Route: 048
     Dates: start: 20231129
  32. HERBALS\DIAMMONIUM GLYCYRRHIZINATE [Concomitant]
     Active Substance: HERBALS\DIAMMONIUM GLYCYRRHIZINATE
     Route: 048
     Dates: start: 20240117
  33. OMEPRAZOLE [Concomitant]
     Active Substance: OMEPRAZOLE
     Route: 048
     Dates: start: 202403
  34. OMEPRAZOLE [Concomitant]
     Active Substance: OMEPRAZOLE
     Route: 048
     Dates: start: 20240204, end: 20240213
  35. OMEPRAZOLE [Concomitant]
     Active Substance: OMEPRAZOLE
     Route: 048
     Dates: start: 20240203, end: 20240203
  36. MEROPENEM [Concomitant]
     Active Substance: MEROPENEM
     Route: 048
     Dates: start: 202404, end: 202404
  37. ACYCLOVIR [Concomitant]
     Active Substance: ACYCLOVIR
     Route: 048
     Dates: start: 202404, end: 202404
  38. Ambroxol injection [Concomitant]
     Route: 042
     Dates: start: 202404, end: 202404
  39. METHYLPREDNISOLONE SODIUM SUCCINATE [Concomitant]
     Active Substance: METHYLPREDNISOLONE SODIUM SUCCINATE
     Route: 042
     Dates: start: 20240203, end: 20240204
  40. ACETAMINOPHEN\ASPIRIN\CAFFEINE [Concomitant]
     Active Substance: ACETAMINOPHEN\ASPIRIN\CAFFEINE
     Route: 048
     Dates: start: 20240203, end: 20240205
  41. PREDNISONE ACETATE [Concomitant]
     Active Substance: PREDNISONE ACETATE
     Route: 048
     Dates: start: 20240204, end: 20240213
  42. LEVOFLOXACIN [Concomitant]
     Active Substance: LEVOFLOXACIN
     Route: 048
     Dates: start: 20240202, end: 20240209
  43. LEVOFLOXACIN [Concomitant]
     Active Substance: LEVOFLOXACIN
     Route: 048
     Dates: start: 20240612, end: 20240616
  44. PROMETHAZINE HYDROCHLORIDE [Concomitant]
     Active Substance: PROMETHAZINE HYDROCHLORIDE
     Route: 030
     Dates: start: 20240203, end: 20240205
  45. PREGABALIN [Concomitant]
     Active Substance: PREGABALIN
     Indication: Analgesic therapy
     Dates: start: 20240612, end: 20240810
  46. METHYLCOBALAMIN [Concomitant]
     Active Substance: METHYLCOBALAMIN
     Indication: Analgesic therapy
     Route: 048
     Dates: start: 20240731
  47. VITAMIN B COMPLEX [Concomitant]
     Active Substance: CYANOCOBALAMIN\DEXPANTHENOL\NIACINAMIDE\PYRIDOXINE HYDROCHLORIDE\RIBOFLAVIN 5^-PHOSPHATE SODIUM\THIA
     Route: 048
     Dates: start: 20240910, end: 20240925
  48. VITAMIN B COMPLEX [Concomitant]
     Active Substance: CYANOCOBALAMIN\DEXPANTHENOL\NIACINAMIDE\PYRIDOXINE HYDROCHLORIDE\RIBOFLAVIN 5^-PHOSPHATE SODIUM\THIA
     Route: 048
     Dates: start: 20241012
  49. VITAMIN B COMPLEX [Concomitant]
     Active Substance: CYANOCOBALAMIN\DEXPANTHENOL\NIACINAMIDE\PYRIDOXINE HYDROCHLORIDE\RIBOFLAVIN 5^-PHOSPHATE SODIUM\THIA
     Route: 048
     Dates: start: 20240731, end: 20240816

REACTIONS (8)
  - Red blood cells urine positive [Recovered/Resolved]
  - White blood cells urine positive [Recovered/Resolved]
  - White blood cell count decreased [Recovered/Resolved]
  - Anaemia [Recovered/Resolved]
  - White blood cells urine positive [Not Recovered/Not Resolved]
  - Anaemia [Recovered/Resolved]
  - Urinary tract infection [Not Recovered/Not Resolved]
  - Blood albumin decreased [Recovered/Resolved with Sequelae]

NARRATIVE: CASE EVENT DATE: 20240105
